FAERS Safety Report 22332481 (Version 2)
Quarter: 2023Q2

REPORT INFORMATION
  Report Type: Spontaneous
  Country: US (occurrence: US)
  Receive Date: 20230517
  Receipt Date: 20230605
  Transmission Date: 20230721
  Serious: Yes (Hospitalization)
  Sender: FDA-Public Use
  Company Number: US-Ultragenyx Pharmaceutical Inc.-US-UGNX-23-00448

PATIENT
  Sex: Male

DRUGS (1)
  1. DOJOLVI [Suspect]
     Active Substance: TRIHEPTANOIN
     Indication: Very long-chain acyl-coenzyme A dehydrogenase deficiency
     Dosage: 15 MILLILITER, QID
     Route: 048
     Dates: start: 202204

REACTIONS (4)
  - Gastrointestinal tube insertion [Unknown]
  - Exercise tolerance decreased [Unknown]
  - Blood glucose fluctuation [Unknown]
  - Treatment noncompliance [Unknown]
